FAERS Safety Report 7411031-1 (Version None)
Quarter: 2011Q2

REPORT INFORMATION
  Report Type: 
  Country: None (occurrence: None)
  Receive Date: 20110413
  Receipt Date: 20110401
  Transmission Date: 20111010
  Serious: Yes (Other)
  Sender: FDA-Public Use
  Company Number: US-JNJFOC-20110403114

PATIENT
  Sex: Female
  Weight: 85.28 kg

DRUGS (17)
  1. FENTANYL CITRATE [Suspect]
     Indication: RHEUMATOID ARTHRITIS
     Route: 062
  2. FENTANYL CITRATE [Suspect]
     Indication: FIBROMYALGIA
     Route: 062
  3. VITAMINS (NOS) [Concomitant]
     Indication: NUTRITIONAL SUPPORT
     Route: 065
  4. CYMBALTA [Concomitant]
     Indication: FIBROMYALGIA
     Route: 048
  5. PLAQUENIL [Concomitant]
     Indication: RHEUMATOID ARTHRITIS
     Route: 048
  6. MAXALT [Concomitant]
     Indication: MIGRAINE
     Dosage: AS NEEDED
     Route: 048
  7. SAVELLA [Suspect]
     Indication: FIBROMYALGIA
     Route: 048
  8. FENTANYL-100 [Suspect]
     Indication: FIBROMYALGIA
     Route: 062
  9. FENTANYL-100 [Suspect]
     Route: 062
  10. FENTANYL-100 [Suspect]
     Route: 062
  11. VICODIN [Concomitant]
     Indication: BREAKTHROUGH PAIN
     Dosage: 7.5, 500 MG, 1-2 AS NEEDED
     Route: 048
  12. IMURAN [Concomitant]
     Indication: RHEUMATOID ARTHRITIS
     Route: 048
  13. GABAPENTIN [Concomitant]
     Indication: NEUROPATHY PERIPHERAL
     Dosage: 600MG TWICE DAILY
     Route: 048
  14. FENTANYL-100 [Suspect]
     Indication: FIBROMYALGIA
     Dosage: NDC#0781-7242-55
     Route: 062
  15. FENTANYL-100 [Suspect]
     Indication: RHEUMATOID ARTHRITIS
     Dosage: NDC#0781-7242-55
     Route: 062
  16. CYMBALTA [Concomitant]
     Route: 048
  17. FENTANYL-100 [Suspect]
     Indication: RHEUMATOID ARTHRITIS
     Route: 062

REACTIONS (7)
  - SYSTEMIC LUPUS ERYTHEMATOSUS [None]
  - BLISTER [None]
  - PAIN [None]
  - VOMITING PROJECTILE [None]
  - C-REACTIVE PROTEIN INCREASED [None]
  - ERYTHEMA [None]
  - MUSCLE SPASMS [None]
